FAERS Safety Report 6031873-7 (Version None)
Quarter: 2009Q1

REPORT INFORMATION
  Report Type: 
  Country: None (occurrence: None)
  Receive Date: 20090107
  Receipt Date: 20081223
  Transmission Date: 20090719
  Serious: Yes (Congenital Anomaly)
  Sender: FDA-Public Use
  Company Number: 1000003363

PATIENT

DRUGS (1)
  1. LEXAPRO [Suspect]
     Dosage: (20 MG), TRANSPLACENTAL
     Route: 064

REACTIONS (5)
  - MATERNAL DRUGS AFFECTING FOETUS [None]
  - NEONATAL DISORDER [None]
  - PYELOCALIECTASIS [None]
  - URETERIC OBSTRUCTION [None]
  - VESICOURETERIC REFLUX [None]
